FAERS Safety Report 12446953 (Version 1)
Quarter: 2016Q2

REPORT INFORMATION
  Report Type: Spontaneous
  Country: GB (occurrence: GB)
  Receive Date: 20160608
  Receipt Date: 20160608
  Transmission Date: 20160815
  Serious: Yes (Other)
  Sender: FDA-Public Use
  Company Number: GB-WATSON-2016-11456

PATIENT
  Age: 85 Year
  Sex: Female

DRUGS (15)
  1. CARBOCISTEINE (UNKNOWN) [Suspect]
     Active Substance: CARBOCYSTEINE
     Indication: CHRONIC OBSTRUCTIVE PULMONARY DISEASE
     Dosage: 750 MG, TID (8AM,12PM AND 4PM)
     Route: 048
     Dates: end: 20160512
  2. SALBUTAMOL [Concomitant]
     Active Substance: ALBUTEROL
     Indication: DYSPNOEA
     Dosage: 5 MG, QID (5 MG/2.5 ML - NOT TO BE CONTINUED BY GP)
     Route: 055
  3. PREDNISOLONE (UNKNOWN) [Suspect]
     Active Substance: PREDNISOLONE
     Indication: PRODUCT USED FOR UNKNOWN INDICATION
     Dosage: 5 MG, QAM
     Route: 048
     Dates: start: 20160507, end: 20160512
  4. PREDNISOLONE (UNKNOWN) [Suspect]
     Active Substance: PREDNISOLONE
     Dosage: 25 MG, QAM
     Route: 048
     Dates: start: 20160417, end: 20160422
  5. PREDNISOLONE (UNKNOWN) [Suspect]
     Active Substance: PREDNISOLONE
     Dosage: 30 MG, QAM
     Route: 048
     Dates: end: 20160416
  6. LOSARTAN POTASSIUM. [Concomitant]
     Active Substance: LOSARTAN POTASSIUM
     Indication: PRODUCT USED FOR UNKNOWN INDICATION
     Dosage: 50 MG, QAM
     Route: 048
  7. PREDNISOLONE (UNKNOWN) [Suspect]
     Active Substance: PREDNISOLONE
     Dosage: 10 MG, QAM
     Route: 048
     Dates: start: 20160502, end: 20160507
  8. UNIPHYLLIN CONTINUS [Concomitant]
     Active Substance: THEOPHYLLINE ANHYDROUS
     Indication: PRODUCT USED FOR UNKNOWN INDICATION
     Dosage: 200 MG, BID (8AM AND 6PM)
     Route: 048
  9. CO-AMOXICLAV                       /00756801/ [Concomitant]
     Active Substance: AMOXICILLIN\CLAVULANIC ACID
     Indication: PRODUCT USED FOR UNKNOWN INDICATION
     Dosage: 625 MG, TID (8AM, 2PM AND 10PM, ORAL STEP DOWN FROM TAZOCIN - NOT TO BE CONTINUED BY GP)
     Route: 048
     Dates: end: 20160417
  10. IPRATROPIUM BROMIDE. [Concomitant]
     Active Substance: IPRATROPIUM BROMIDE
     Indication: PRODUCT USED FOR UNKNOWN INDICATION
     Dosage: 500 ?G, QID (500 MICROGRAM/2ML - NOT TO BE CONTINUED BY GP)
     Route: 055
  11. SALBUTAMOL [Concomitant]
     Active Substance: ALBUTEROL
     Dosage: 200 ?G, PRN (TO BE CONTINUED BY GP)
     Route: 055
  12. PREDNISOLONE (UNKNOWN) [Suspect]
     Active Substance: PREDNISOLONE
     Dosage: 15 MG, QAM
     Route: 048
     Dates: start: 20160427, end: 20160502
  13. PREDNISOLONE (UNKNOWN) [Suspect]
     Active Substance: PREDNISOLONE
     Dosage: 20 MG, QAM
     Route: 048
     Dates: start: 20160422, end: 20160427
  14. SERETIDE [Concomitant]
     Active Substance: FLUTICASONE PROPIONATE\SALMETEROL XINAFOATE
     Indication: PRODUCT USED FOR UNKNOWN INDICATION
     Dosage: 2 DF, BID (8AM AND 6PM - TO BE CONTINUED BY GP)
     Route: 055
  15. LANSOPRAZOLE. [Concomitant]
     Active Substance: LANSOPRAZOLE
     Indication: PRODUCT USED FOR UNKNOWN INDICATION
     Dosage: 30 MG, QAM - TO BE CONTINUED BY GP
     Route: 048

REACTIONS (1)
  - Chronic gastritis [Recovering/Resolving]
